FAERS Safety Report 5511024-5 (Version None)
Quarter: 2007Q4

REPORT INFORMATION
  Report Type: 
  Country: None (occurrence: None)
  Receive Date: 20071109
  Receipt Date: 20071102
  Transmission Date: 20080405
  Serious: Yes (Other)
  Sender: FDA-Public Use
  Company Number: US-JNJFOC-20071101700

PATIENT
  Age: 22 Year
  Sex: Male
  Weight: 72.58 kg

DRUGS (3)
  1. EXTRA STRENGTH TYLENOL [Suspect]
     Indication: INSOMNIA
     Dosage: POSSIBLY 10 CAPLETS AT A TIME ON OCCASION
  2. ADDERALL 10 [Concomitant]
  3. ANTIDEPRESSANTS [Concomitant]

REACTIONS (1)
  - INTENTIONAL OVERDOSE [None]
